FAERS Safety Report 9095587 (Version 2)
Quarter: 2013Q1

REPORT INFORMATION
  Report Type: Spontaneous
  Country: US (occurrence: None)
  Receive Date: 20130122
  Receipt Date: 20130131
  Transmission Date: 20140127
  Serious: Yes (Hospitalization)
  Sender: FDA-Public Use
  Company Number: 2013-0068

PATIENT
  Age: 76 Year
  Sex: Female

DRUGS (1)
  1. KYPROLIS (CARFILZOMIB) (INJECTION FOR INFUSION) (CARFILZOMIB) [Suspect]
     Indication: PLASMA CELL MYELOMA
     Route: 042
     Dates: start: 20120927

REACTIONS (9)
  - Haemoglobin decreased [None]
  - Abdominal pain [None]
  - Nervous system disorder [None]
  - Escherichia urinary tract infection [None]
  - Fall [None]
  - Herpes simplex [None]
  - Decreased appetite [None]
  - Cough [None]
  - Influenza [None]
